FAERS Safety Report 18458047 (Version 1)
Quarter: 2020Q4

REPORT INFORMATION
  Report Type: Spontaneous
  Country: FR (occurrence: FR)
  Receive Date: 20201103
  Receipt Date: 20201103
  Transmission Date: 20210114
  Serious: Yes (Disabling, Other)
  Sender: FDA-Public Use
  Company Number: FR-009507513-2010FRA011906

PATIENT
  Age: 56 Year
  Sex: Male

DRUGS (6)
  1. SOLU-MEDROL [Concomitant]
     Active Substance: METHYLPREDNISOLONE SODIUM SUCCINATE
     Dosage: UNK
  2. ONDANSETRON [Concomitant]
     Active Substance: ONDANSETRON
     Dosage: UNK
  3. EMEND [Concomitant]
     Active Substance: APREPITANT
     Dosage: UNK
  4. PEMBROLIZUMAB. [Suspect]
     Active Substance: PEMBROLIZUMAB
     Indication: LUNG ADENOCARCINOMA
     Dosage: 200 MILLIGRAM, CYCLICAL
     Route: 041
     Dates: start: 20200909, end: 20200909
  5. CARBOPLATIN. [Concomitant]
     Active Substance: CARBOPLATIN
     Dosage: UNK
  6. ALIMTA [Concomitant]
     Active Substance: PEMETREXED DISODIUM
     Dosage: UNK

REACTIONS (3)
  - Anaesthesia dolorosa [Recovered/Resolved]
  - Chest pain [Recovered/Resolved]
  - Diplegia [Recovered/Resolved]

NARRATIVE: CASE EVENT DATE: 20200909
